FAERS Safety Report 15203946 (Version 1)
Quarter: 2018Q3

REPORT INFORMATION
  Report Type: Report from Study
  Country: ZA (occurrence: ZA)
  Receive Date: 20180726
  Receipt Date: 20180726
  Transmission Date: 20181010
  Serious: Yes (Other)
  Sender: FDA-Public Use
  Company Number: ZA-VIIV HEALTHCARE LIMITED-ZA2014GSK016073

PATIENT
  Age: 39 Year
  Sex: Female

DRUGS (10)
  1. TENOFOVIR DISOPROXIL FUMARATE. [Suspect]
     Active Substance: TENOFOVIR DISOPROXIL FUMARATE
     Indication: HIV INFECTION
     Dosage: 300 MG, QD
     Route: 048
     Dates: start: 20140408
  2. NEVIRAPINE. [Suspect]
     Active Substance: NEVIRAPINE
     Indication: HIV INFECTION
     Dosage: 400 MG, QD
     Route: 048
     Dates: start: 20050501, end: 20140408
  3. KALETRA [Suspect]
     Active Substance: LOPINAVIR\RITONAVIR
     Indication: HIV INFECTION
     Dosage: 8 DF, UNK
     Route: 048
     Dates: start: 20140408
  4. PYRAZINAMIDE. [Concomitant]
     Active Substance: PYRAZINAMIDE
     Indication: PULMONARY TUBERCULOSIS
     Dosage: UNK, U
     Dates: start: 20140416
  5. ISONIAZIDE [Concomitant]
     Active Substance: ISONIAZID
     Indication: PULMONARY TUBERCULOSIS
     Dosage: UNK, U
     Dates: start: 20140416
  6. STAVUDINE. [Suspect]
     Active Substance: STAVUDINE
     Indication: HIV INFECTION
     Dosage: 60 MG, QD
     Route: 048
     Dates: start: 20050501, end: 20140408
  7. RIFAMPIN. [Concomitant]
     Active Substance: RIFAMPIN
     Indication: PULMONARY TUBERCULOSIS
     Dosage: UNK UNK, U
     Dates: start: 20140416
  8. ETHAMBUTOL [Concomitant]
     Active Substance: ETHAMBUTOL HYDROCHLORIDE
     Indication: PULMONARY TUBERCULOSIS
     Dosage: UNK, U
     Dates: start: 20140416
  9. FOLATE SUPPLEMENT [Concomitant]
     Indication: SUPPLEMENTATION THERAPY
     Dosage: UNK
  10. LAMIVUDINE. [Suspect]
     Active Substance: LAMIVUDINE
     Indication: HIV INFECTION
     Dosage: 300 MG, QD
     Route: 048
     Dates: start: 20050501

REACTIONS (10)
  - Pulmonary tuberculosis [Unknown]
  - Tuberculosis [Unknown]
  - Premature labour [Unknown]
  - Angiopathy [Unknown]
  - Placental infarction [Unknown]
  - Placental insufficiency [Unknown]
  - Exposure during pregnancy [Unknown]
  - Placental disorder [Unknown]
  - Live birth [Unknown]
  - Oligohydramnios [Unknown]

NARRATIVE: CASE EVENT DATE: 20140826
